FAERS Safety Report 16479269 (Version 2)
Quarter: 2020Q3

REPORT INFORMATION
  Report Type: Spontaneous
  Country: US (occurrence: US)
  Receive Date: 20190626
  Receipt Date: 20200710
  Transmission Date: 20201102
  Serious: Yes (Hospitalization)
  Sender: FDA-Public Use
  Company Number: US-SAOL THERAPEUTICS-2019SAO00179

PATIENT
  Age: 17 Year
  Sex: Male
  Weight: 58.96 kg

DRUGS (4)
  1. ZANAFLEX [Concomitant]
     Active Substance: TIZANIDINE HYDROCHLORIDE
     Dosage: UNK, AS NEEDED
     Route: 048
  2. LIORESAL [Suspect]
     Active Substance: BACLOFEN
     Indication: MUSCLE SPASTICITY
     Dosage: 545 ?G/ML, \DAY
     Route: 037
  3. LIORESAL [Suspect]
     Active Substance: BACLOFEN
     Indication: CEREBRAL PALSY
     Dosage: 226.6 ?G, \DAY
     Route: 037
  4. ORAL BACLOFEN [Concomitant]
     Active Substance: BACLOFEN
     Dosage: UNK, AS NEEDED
     Route: 048

REACTIONS (3)
  - Drug withdrawal syndrome [Recovered/Resolved]
  - Device occlusion [Recovered/Resolved]
  - Device malfunction [Recovered/Resolved]

NARRATIVE: CASE EVENT DATE: 201902
